FAERS Safety Report 22519313 (Version 2)
Quarter: 2023Q2

REPORT INFORMATION
  Report Type: Other
  Country: CN (occurrence: CN)
  Receive Date: 20230605
  Receipt Date: 20230619
  Transmission Date: 20230721
  Serious: Yes (Other)
  Sender: FDA-Public Use
  Company Number: CN-DEXPHARM-20231283

PATIENT
  Age: 56 Year
  Sex: Male

DRUGS (6)
  1. ESOMEPRAZOLE MAGNESIUM [Suspect]
     Active Substance: ESOMEPRAZOLE MAGNESIUM
     Indication: Hormone therapy
     Dosage: ENTERIC-COATED TABLETS
  2. CALCIUM CARBONATE [Concomitant]
     Active Substance: CALCIUM CARBONATE
     Indication: Hormone therapy
  3. Alendronic-acid [alendronate sodium] [Concomitant]
     Indication: Hormone therapy
  4. CALCITRIOL [Concomitant]
     Active Substance: CALCITRIOL
     Indication: Hormone therapy
  5. METHYLPREDNISOLONE [Concomitant]
     Active Substance: METHYLPREDNISOLONE
     Indication: Endocrine ophthalmopathy
     Dosage: IV INFUSION OF METHYLPREDNISOLONE 500 MG/D,
  6. PREDNISONE [Concomitant]
     Active Substance: PREDNISONE
     Indication: Endocrine ophthalmopathy
     Dosage: CHANGED TO ORAL PREDNISONE 40 MG/D AFTER 3 DAYS,

REACTIONS (1)
  - Acute kidney injury [Recovered/Resolved]
